FAERS Safety Report 11950921 (Version 1)
Quarter: 2016Q1

REPORT INFORMATION
  Report Type: Spontaneous
  Country: US (occurrence: None)
  Receive Date: 20160122
  Receipt Date: 20160122
  Transmission Date: 20160526
  Serious: No
  Sender: FDA-Public Use
  Company Number: None

PATIENT

DRUGS (2)
  1. CARDENE [Suspect]
     Active Substance: NICARDIPINE HYDROCHLORIDE
     Dosage: PREMIXED INJECTION 40 MG IN 200 ML  1 GALAXY SINGLE-DOSE CONTAINER
  2. NEXTERONE [Suspect]
     Active Substance: AMIODARONE HYDROCHLORIDE
     Dosage: PREMIXED INJECTION 360 MG/200 ML

REACTIONS (4)
  - Circumstance or information capable of leading to medication error [None]
  - Product label confusion [None]
  - Intercepted drug administration error [None]
  - Product packaging issue [None]
